FAERS Safety Report 5207256-6 (Version None)
Quarter: 2007Q1

REPORT INFORMATION
  Report Type: 
  Country: None (occurrence: None)
  Receive Date: 20070110
  Receipt Date: 20061228
  Transmission Date: 20070707
  Serious: Yes (Hospitalization, Other)
  Sender: FDA-Public Use
  Company Number: HQWYE328103JAN07

PATIENT
  Age: 46 Year
  Sex: Male
  Weight: 96 kg

DRUGS (28)
  1. RAPAMUNE [Suspect]
     Indication: PROPHYLAXIS AGAINST TRANSPLANT REJECTION
     Dosage: 3 MG 1X PER 1 DAY, ORAL
     Route: 048
     Dates: start: 20060522, end: 20061117
  2. RAPAMUNE [Suspect]
     Indication: PROPHYLAXIS AGAINST TRANSPLANT REJECTION
     Dosage: 3 MG 1X PER 1 DAY, ORAL
     Route: 048
     Dates: start: 20061124, end: 20061127
  3. MYCOPHENOLIC ACID [Suspect]
     Indication: PROPHYLAXIS AGAINST TRANSPLANT REJECTION
     Dosage: SEE IMAGE
     Dates: start: 20060522, end: 20061130
  4. MYCOPHENOLIC ACID [Suspect]
     Indication: PROPHYLAXIS AGAINST TRANSPLANT REJECTION
     Dosage: SEE IMAGE
     Dates: start: 20061201
  5. ASPIRIN [Concomitant]
  6. ASPIRIN [Concomitant]
  7. CELEXA [Concomitant]
  8. CELEXA [Concomitant]
  9. LOPRESSOR [Concomitant]
  10. LOPRESSOR [Concomitant]
  11. POTASSIUM CHLORIDE [Concomitant]
  12. POTASSIUM CHLORIDE [Concomitant]
  13. SODIUM BICARBONATE IN PLASTIC CONTAINER [Concomitant]
  14. SODIUM BICARBONATE IN PLASTIC CONTAINER [Concomitant]
  15. BACTRIM [Concomitant]
  16. BACTRIM [Concomitant]
  17. NEXIUM [Concomitant]
  18. NEXIUM [Concomitant]
  19. HYDROCHLOROTHIAZIDE [Concomitant]
  20. HYDROCHLOROTHIAZIDE [Concomitant]
  21. NEORAL [Concomitant]
  22. NEORAL [Concomitant]
  23. VALCYTE [Concomitant]
  24. VALCYTE [Concomitant]
  25. LORTAB [Concomitant]
  26. LORTAB [Concomitant]
  27. NYSTATIN [Concomitant]
  28. NYSTATIN [Concomitant]

REACTIONS (6)
  - BLOOD CREATININE INCREASED [None]
  - CLOSTRIDIUM DIFFICILE COLITIS [None]
  - DUODENAL ULCER [None]
  - INCORRECT DRUG ADMINISTRATION DURATION [None]
  - OESOPHAGEAL MUCOSAL HYPERPLASIA [None]
  - OESOPHAGEAL ULCER [None]
